FAERS Safety Report 10022467 (Version 2)
Quarter: 2014Q2

REPORT INFORMATION
  Report Type: Spontaneous
  Country: GB (occurrence: GB)
  Receive Date: 20140319
  Receipt Date: 20140410
  Transmission Date: 20141212
  Serious: Yes (Life-Threatening, Hospitalization, Other)
  Sender: FDA-Public Use
  Company Number: GB-UCBSA-114468

PATIENT
  Sex: Female

DRUGS (2)
  1. CO-CODAMOL [Suspect]
     Indication: FALL
  2. LYRICA [Interacting]
     Indication: FALL

REACTIONS (4)
  - Cardiac arrest [Recovered/Resolved]
  - Ileus paralytic [Unknown]
  - Large intestine perforation [Recovered/Resolved with Sequelae]
  - Drug interaction [Unknown]
